FAERS Safety Report 11800635 (Version 1)
Quarter: 2015Q4

REPORT INFORMATION
  Report Type: Report from Study
  Country: US (occurrence: US)
  Receive Date: 20151204
  Receipt Date: 20151204
  Transmission Date: 20160305
  Serious: Yes (Hospitalization)
  Sender: FDA-Public Use
  Company Number: PHEH2015US024376

PATIENT
  Age: 58 Year
  Sex: Female

DRUGS (1)
  1. DESFERAL [Suspect]
     Active Substance: DEFEROXAMINE MESYLATE
     Indication: IRON OVERLOAD
     Dosage: UNK
     Route: 042

REACTIONS (5)
  - Sickle cell anaemia with crisis [Unknown]
  - Pneumonia [Unknown]
  - Arthralgia [Unknown]
  - Lung infection [Unknown]
  - Dyspnoea [Unknown]
